FAERS Safety Report 8357443 (Version 4)
Quarter: 2014Q1

REPORT INFORMATION
  Report Type: Spontaneous
  Country: US (occurrence: US)
  Receive Date: 20120127
  Receipt Date: 20140219
  Transmission Date: 20141002
  Serious: Yes (Hospitalization)
  Sender: FDA-Public Use
  Company Number: US-BAYER-2012-006918

PATIENT
  Age: 28 Year
  Sex: Female
  Weight: 59 kg

DRUGS (29)
  1. YAZ [Suspect]
     Indication: CONTRACEPTION
     Dosage: UNK
     Route: 048
     Dates: start: 2009, end: 201008
  2. GIANVI [Suspect]
     Indication: CONTRACEPTION
     Dosage: UNK
     Route: 048
     Dates: start: 201008, end: 201012
  3. ADDERALL [Concomitant]
     Indication: ATTENTION DEFICIT/HYPERACTIVITY DISORDER
     Dosage: UNK
     Route: 048
     Dates: start: 2008
  4. ADDERALL [Concomitant]
     Indication: ATTENTION DEFICIT/HYPERACTIVITY DISORDER
     Dosage: UNK
     Dates: start: 20090415, end: 20110502
  5. ALBUTEROL [Concomitant]
     Dosage: UNK
     Dates: start: 2008, end: 2011
  6. ALLERGY SHOTS [Concomitant]
     Indication: SEASONAL ALLERGY
     Dosage: UNK
     Dates: start: 2009
  7. PREDNISONE [Concomitant]
     Dosage: UNK
     Route: 048
     Dates: start: 20101123, end: 20101130
  8. PREDNISONE [Concomitant]
     Dosage: 20MG 2 A DAY FOR 3 DAYS THEN ONE DAILY FOR 4 DAYS
     Route: 048
     Dates: start: 20101124, end: 20101203
  9. IBUPROFEN [Concomitant]
     Indication: PAIN
     Dosage: 800 MG, UNK
     Route: 048
     Dates: start: 20101201, end: 20101203
  10. MORPHINE [Concomitant]
     Indication: PAIN
     Dosage: 10 MG, UNK
     Dates: start: 20101203
  11. AMOXICILLIN W/CLAVULANATE POTASSIUM [Concomitant]
     Indication: EAR PAIN
     Dosage: 875 MG, BID
     Dates: start: 20101123, end: 20101218
  12. AMBIEN [Concomitant]
     Indication: INSOMNIA
     Dosage: UNK
     Route: 048
     Dates: start: 20100601
  13. ACIPHEX [Concomitant]
     Dosage: UNK
     Route: 048
     Dates: start: 20100728
  14. AUGMENTIN [Concomitant]
     Indication: ACUTE SINUSITIS
     Dosage: 875 MG -125 MG ONE TAB Q 12 HRS.
     Route: 048
     Dates: start: 20101124
  15. VICODIN [Concomitant]
     Indication: PAIN
     Dosage: 5MG-500MG Q4-6 HRS.
     Route: 048
     Dates: start: 20100601, end: 20101203
  16. CLINDAMYCIN [Concomitant]
     Indication: OTITIS MEDIA
     Dosage: 300 MG Q 6 HRS
     Route: 048
     Dates: start: 20101203
  17. ZYRTEC-D [Concomitant]
     Indication: NASAL DECONGESTION THERAPY
     Dosage: 5 MG-120 MG Q 12 HRS
     Route: 048
     Dates: start: 20101203
  18. FIORICET [Concomitant]
     Indication: HEADACHE
     Dosage: UNK
     Route: 048
     Dates: start: 20101213
  19. TRAMADOL [Concomitant]
     Indication: HEADACHE
     Dosage: UNK
     Route: 048
     Dates: start: 20101213
  20. ANTIBIOTICS [Concomitant]
     Route: 042
  21. ADVAIR [Concomitant]
  22. CYMBALTA [Concomitant]
     Dosage: 30 MG PER DAY FOR ONE WEEK AND INCREASE IT TO 60 MG PER DAY
     Dates: start: 20100729
  23. CYMBALTA [Concomitant]
     Dosage: 60 MG, QD
  24. MILNACIPRAN HYDROCHLORIDE [Concomitant]
     Dosage: UNK UNK, Q1MON
     Route: 048
     Dates: start: 20101016
  25. CEFDINIR [Concomitant]
     Dosage: UNK UNK, BID
     Route: 048
     Dates: start: 20101201
  26. OTOLOGICALS [Concomitant]
     Dosage: UNK UNK, QID
     Dates: start: 20101201
  27. ALEVE [Concomitant]
  28. AFRIN SPRAY [Concomitant]
     Route: 045
  29. OCEAN [Concomitant]
     Route: 045

REACTIONS (4)
  - Cerebral venous thrombosis [Recovered/Resolved]
  - Pain [Recovered/Resolved]
  - Emotional distress [None]
  - Anxiety [None]
